FAERS Safety Report 7032140-5 (Version None)
Quarter: 2010Q4

REPORT INFORMATION
  Report Type: 
  Country: None (occurrence: None)
  Receive Date: 20101007
  Receipt Date: 20100924
  Transmission Date: 20110411
  Serious: Yes (Disabling)
  Sender: FDA-Public Use
  Company Number: US-ELI_LILLY_AND_COMPANY-US201009006987

PATIENT
  Sex: Female

DRUGS (27)
  1. FORTEO [Suspect]
     Indication: OSTEOPOROSIS
     Dosage: 20 UG, DAILY (1/D)
     Dates: start: 20100913
  2. NIFEDIPINE [Concomitant]
  3. ALDOMET [Concomitant]
  4. ALTACE [Concomitant]
  5. AVAPRO [Concomitant]
  6. COREG [Concomitant]
  7. CATAPRES /00171101/ [Concomitant]
  8. FUROSEMIDE [Concomitant]
  9. HYDRALAZINE HCL [Concomitant]
  10. FOLGARD [Concomitant]
  11. LIPITOR [Concomitant]
  12. PROGRAF [Concomitant]
  13. PREDNISONE [Concomitant]
  14. BYETTA [Concomitant]
  15. METOCLOPRAMIDE [Concomitant]
  16. ASPIRIN [Concomitant]
  17. IRON [Concomitant]
  18. MULTI-VITAMIN [Concomitant]
  19. PEPCID [Concomitant]
  20. VITAMIN B6 [Concomitant]
  21. ASCORBIC ACID [Concomitant]
  22. VITAMIN D [Concomitant]
  23. TYLENOL (CAPLET) [Concomitant]
     Dosage: 1000 MG, AS NEEDED
  24. DARVON [Concomitant]
  25. HYDROCODONE [Concomitant]
  26. MIRTAZAPINE [Concomitant]
  27. CELLCEPT [Concomitant]

REACTIONS (1)
  - BONE PAIN [None]
